FAERS Safety Report 24870367 (Version 4)
Quarter: 2025Q1

REPORT INFORMATION
  Report Type: Spontaneous
  Country: US (occurrence: US)
  Receive Date: 20250121
  Receipt Date: 20250228
  Transmission Date: 20250409
  Serious: Yes (Life-Threatening, Hospitalization, Other)
  Sender: SANOFI AVENTIS
  Company Number: US-SA-2025SA017492

PATIENT
  Age: 16 Year
  Sex: Female
  Weight: 56 kg

DRUGS (2)
  1. THYMOGLOBULIN [Suspect]
     Active Substance: LAPINE T-LYMPHOCYTE IMMUNE GLOBULIN
     Indication: Prophylaxis against transplant rejection
     Route: 042
     Dates: start: 20241223, end: 20241223
  2. THYMOGLOBULIN [Suspect]
     Active Substance: LAPINE T-LYMPHOCYTE IMMUNE GLOBULIN
     Dosage: 100 MG, QD
     Route: 042
     Dates: start: 20241224, end: 20241226

REACTIONS (6)
  - Transplant rejection [Recovering/Resolving]
  - Serum sickness [Recovering/Resolving]
  - Arthralgia [Recovering/Resolving]
  - Pain in jaw [Recovering/Resolving]
  - Pain [Recovering/Resolving]
  - Drug specific antibody present [Unknown]

NARRATIVE: CASE EVENT DATE: 20250104
